FAERS Safety Report 4830521-9 (Version None)
Quarter: 2005Q4

REPORT INFORMATION
  Report Type: 
  Country: None (occurrence: None)
  Receive Date: 20051117
  Receipt Date: 20051103
  Transmission Date: 20060501
  Serious: Yes (Hospitalization)
  Sender: FDA-Public Use
  Company Number: PHHO2005FI17501

PATIENT
  Age: 68 Year
  Sex: Male

DRUGS (4)
  1. GLEEVEC [Suspect]
     Indication: CHRONIC MYELOID LEUKAEMIA
     Dosage: 400 MG, QD
     Route: 048
     Dates: start: 20050301, end: 20051001
  2. CARDACE [Concomitant]
     Dates: start: 20050901
  3. SYMBICORT TURBUHALER [Concomitant]
     Dates: start: 20040101
  4. PEG-INTRON [Concomitant]
     Dates: start: 20050301

REACTIONS (6)
  - CORONARY ARTERY DISEASE [None]
  - COUGH [None]
  - DYSPNOEA [None]
  - HYPOXIA [None]
  - LYMPHOCYTOSIS [None]
  - PNEUMONITIS [None]
